FAERS Safety Report 18466715 (Version 2)
Quarter: 2020Q4

REPORT INFORMATION
  Report Type: Spontaneous
  Country: JP (occurrence: JP)
  Receive Date: 20201105
  Receipt Date: 20201123
  Transmission Date: 20210114
  Serious: Yes (Hospitalization)
  Sender: FDA-Public Use
  Company Number: JP-AMGEN-JPNSP2020177919

PATIENT
  Age: 9 Decade
  Sex: Female

DRUGS (4)
  1. RANMARK [Suspect]
     Active Substance: DENOSUMAB
     Indication: METASTASES TO BONE
     Dosage: UNK
     Route: 065
  2. ABEMACICLIB [Suspect]
     Active Substance: ABEMACICLIB
     Indication: PRODUCT USED FOR UNKNOWN INDICATION
     Dosage: 100 MILLIGRAM, QD
     Route: 048
  3. ABEMACICLIB [Suspect]
     Active Substance: ABEMACICLIB
     Dosage: 50 MILLIGRAM, QD
     Route: 048
  4. FULVESTRANT. [Concomitant]
     Active Substance: FULVESTRANT
     Dosage: UNK
     Route: 065

REACTIONS (2)
  - Myopathy [Recovering/Resolving]
  - Hypokalaemia [Recovering/Resolving]
